FAERS Safety Report 9900931 (Version 1)
Quarter: 2014Q1

REPORT INFORMATION
  Report Type: Report from Study
  Country: US (occurrence: US)
  Receive Date: 20140217
  Receipt Date: 20140217
  Transmission Date: 20141002
  Serious: No
  Sender: FDA-Public Use
  Company Number: US-ABBVIE-13P-163-1060943-00

PATIENT
  Age: 45 Year
  Sex: Male

DRUGS (1)
  1. SIMCOR 1000/40 [Suspect]
     Indication: PRODUCT USED FOR UNKNOWN INDICATION
     Dosage: 1000/40MG
     Dates: start: 201003, end: 20130307

REACTIONS (1)
  - Diabetes mellitus [Not Recovered/Not Resolved]
